FAERS Safety Report 7324234-1 (Version None)
Quarter: 2011Q1

REPORT INFORMATION
  Report Type: 
  Country: None (occurrence: None)
  Receive Date: 20110220
  Receipt Date: 20101130
  Transmission Date: 20110831
  Serious: No
  Sender: FDA-Public Use
  Company Number: 2010-15489

PATIENT
  Sex: Male

DRUGS (1)
  1. RAPAFLO [Suspect]
     Indication: URINARY INCONTINENCE
     Dosage: 1 CAPSULE, SINGLE, ORAL
     Route: 048
     Dates: start: 20101105, end: 20101105

REACTIONS (3)
  - FLATULENCE [None]
  - DIARRHOEA [None]
  - ABDOMINAL PAIN UPPER [None]
